FAERS Safety Report 25228425 (Version 1)
Quarter: 2025Q2

REPORT INFORMATION
  Report Type: Spontaneous
  Country: US (occurrence: US)
  Receive Date: 20250423
  Receipt Date: 20250423
  Transmission Date: 20250716
  Serious: Yes (Hospitalization)
  Sender: ROCHE
  Company Number: US-ROCHE-10000260926

PATIENT

DRUGS (2)
  1. INAVOLISIB [Suspect]
     Active Substance: INAVOLISIB
     Indication: Genitourinary tract infection
     Route: 065
  2. PALBOCICLIB [Suspect]
     Active Substance: PALBOCICLIB
     Indication: Genitourinary tract infection
     Route: 065

REACTIONS (3)
  - Off label use [Unknown]
  - Type 2 diabetes mellitus [Unknown]
  - Hyperglycaemia [Unknown]

NARRATIVE: CASE EVENT DATE: 20250201
